FAERS Safety Report 20685334 (Version 1)
Quarter: 2022Q2

REPORT INFORMATION
  Report Type: Spontaneous
  Country: ES (occurrence: ES)
  Receive Date: 20220407
  Receipt Date: 20220407
  Transmission Date: 20220720
  Serious: Yes (Hospitalization)
  Sender: FDA-Public Use
  Company Number: None

PATIENT
  Age: 73 Year
  Sex: Male

DRUGS (9)
  1. ALPRAZOLAM [Suspect]
     Active Substance: ALPRAZOLAM
     Indication: Anxiolytic therapy
     Dosage: UNK (0.5 COMPRIMIDOS CADA 8 HORAS)
     Route: 048
     Dates: start: 20211028, end: 20211111
  2. LORAZEPAM [Suspect]
     Active Substance: LORAZEPAM
     Indication: Anxiolytic therapy
     Dosage: UNK 91 COMPRIMIDO CADA 24 HORAS)
     Route: 048
     Dates: start: 20210908, end: 20211111
  3. EDOXABAN [Concomitant]
     Active Substance: EDOXABAN
     Indication: Product used for unknown indication
     Dosage: UNK (1 COMP AL D?A)
     Route: 048
     Dates: start: 20210825
  4. ALLOPURINOL [Concomitant]
     Active Substance: ALLOPURINOL
     Indication: Hyperuricaemia
     Dosage: UNK (1 COMP CADA 24 HORAS)
     Route: 048
     Dates: start: 202104
  5. PAROXETINE [Concomitant]
     Active Substance: PAROXETINE
     Indication: Product used for unknown indication
     Dosage: UNK (1 COMP AL D?A)
     Route: 048
     Dates: start: 20211028
  6. OMEPRAZOLE [Concomitant]
     Active Substance: OMEPRAZOLE
     Indication: Product used for unknown indication
     Dosage: UNK (1 CAPS AL D?A)
     Route: 048
     Dates: start: 20210315
  7. SPIRONOLACTONE [Concomitant]
     Active Substance: SPIRONOLACTONE
     Indication: Polyuria
     Dosage: UNK (0.5 COMP AL D?A)
     Route: 048
     Dates: start: 202107
  8. DUTASTERIDE\TAMSULOSIN [Concomitant]
     Active Substance: DUTASTERIDE\TAMSULOSIN
     Indication: Polyuria
     Dosage: UNK (1 C?PSULA CADA 24 HORAS)
     Route: 048
     Dates: start: 20210622, end: 20211111
  9. AMIODARONE [Concomitant]
     Active Substance: AMIODARONE
     Indication: Arrhythmia
     Dosage: UNK (1 COMPRIMIDO AL D?A)
     Route: 048
     Dates: start: 202103

REACTIONS (1)
  - Depressed level of consciousness [Recovered/Resolved]

NARRATIVE: CASE EVENT DATE: 20211111
